FAERS Safety Report 7503654-6 (Version None)
Quarter: 2011Q2

REPORT INFORMATION
  Report Type: 
  Country: None (occurrence: None)
  Receive Date: 20110518
  Receipt Date: 20110512
  Transmission Date: 20111010
  Serious: Yes (Hospitalization)
  Sender: FDA-Public Use
  Company Number: 918828

PATIENT
  Age: 28 Year
  Sex: Female

DRUGS (3)
  1. VINCRISTINE SULFATE [Suspect]
     Indication: TERATOMA
  2. (ANTHRACYCLINE AND RELATED SUBSTANCES) [Suspect]
     Indication: TERATOMA
  3. CISPLATIN [Suspect]
     Indication: TERATOMA

REACTIONS (6)
  - DILATATION ATRIAL [None]
  - MYOCARDIAL CALCIFICATION [None]
  - ENDOCARDIAL FIBROSIS [None]
  - RESTRICTIVE CARDIOMYOPATHY [None]
  - CARDIAC FAILURE [None]
  - DILATATION VENTRICULAR [None]
